FAERS Safety Report 7389295-2 (Version None)
Quarter: 2011Q2

REPORT INFORMATION
  Report Type: 
  Country: None (occurrence: None)
  Receive Date: 20110401
  Receipt Date: 20110328
  Transmission Date: 20111010
  Serious: Yes (Other)
  Sender: FDA-Public Use
  Company Number: A0844779A

PATIENT
  Sex: Female

DRUGS (8)
  1. PROMACTA [Suspect]
     Indication: THROMBOCYTOPENIA
     Dosage: 25MG SEE DOSAGE TEXT
     Route: 048
     Dates: start: 20091001, end: 20100219
  2. SPIRONOLACTONE [Concomitant]
     Dosage: 50MG PER DAY
  3. ACTONEL [Concomitant]
     Dosage: 150MG MONTHLY
  4. WARFARIN [Concomitant]
     Dosage: 5MG PER DAY
  5. TOPROL-XL [Concomitant]
     Dosage: 25MG PER DAY
  6. PLAQUENIL [Concomitant]
  7. HYDROXYCHLOROQUINE SULFATE [Concomitant]
     Dosage: 400MG PER DAY
  8. DECADRON [Concomitant]

REACTIONS (2)
  - BLOOD ALKALINE PHOSPHATASE INCREASED [None]
  - DRUG INEFFECTIVE [None]
